FAERS Safety Report 12390537 (Version 1)
Quarter: 2016Q2

REPORT INFORMATION
  Report Type: Spontaneous
  Country: US (occurrence: US)
  Receive Date: 20160520
  Receipt Date: 20160520
  Transmission Date: 20160815
  Serious: No
  Sender: FDA-Public Use
  Company Number: PHHY2016US069211

PATIENT
  Sex: Male

DRUGS (1)
  1. VOLTAREN [Suspect]
     Active Substance: DICLOFENAC SODIUM
     Indication: INTERVERTEBRAL DISC DEGENERATION
     Dosage: UNK
     Route: 065
     Dates: start: 2008

REACTIONS (2)
  - Drug administered at inappropriate site [Unknown]
  - Product use issue [Unknown]
